FAERS Safety Report 21978969 (Version 1)
Quarter: 2023Q1

REPORT INFORMATION
  Report Type: Spontaneous
  Country: US (occurrence: US)
  Receive Date: 20230210
  Receipt Date: 20230210
  Transmission Date: 20230418
  Serious: No
  Sender: FDA-Public Use
  Company Number: US-PERRIGO-22US016856

PATIENT

DRUGS (2)
  1. LOPERAMIDE HYDROCHLORIDE [Suspect]
     Active Substance: LOPERAMIDE HYDROCHLORIDE
     Indication: Product used for unknown indication
     Dosage: 4 MG, UNKNOWN
     Route: 048
     Dates: start: 202212
  2. LOPERAMIDE HYDROCHLORIDE [Suspect]
     Active Substance: LOPERAMIDE HYDROCHLORIDE
     Dosage: UNKNOWN (SPLITTING DOSE), UNKNOWN
     Route: 048
     Dates: start: 202212

REACTIONS (3)
  - Constipation [Unknown]
  - Therapeutic product effect delayed [Unknown]
  - Underdose [Unknown]

NARRATIVE: CASE EVENT DATE: 20221201
